FAERS Safety Report 7665562 (Version 2)
Quarter: 2016Q1

REPORT INFORMATION
  Report Type: Spontaneous
  Country: JP (occurrence: JP)
  Receive Date: 20101112
  Receipt Date: 20160115
  Transmission Date: 20160526
  Serious: Yes (Hospitalization, Other)
  Sender: FDA-Public Use
  Company Number: JP-BRISTOL-MYERS SQUIBB COMPANY-15372865

PATIENT
  Age: 1 Day
  Sex: Male

DRUGS (2)
  1. FLUVOXAMINE MALEATE. [Concomitant]
     Active Substance: FLUVOXAMINE MALEATE
     Indication: PRODUCT USED FOR UNKNOWN INDICATION
     Dosage: UNK
     Route: 064
  2. ABILIFY [Suspect]
     Active Substance: ARIPIPRAZOLE
     Indication: PRODUCT USED FOR UNKNOWN INDICATION
     Dosage: UNK
     Route: 064

REACTIONS (7)
  - Convulsion neonatal [Recovering/Resolving]
  - Pneumomediastinum [Unknown]
  - Pallor [Unknown]
  - Foetal exposure during pregnancy [Unknown]
  - Myoclonus [Recovering/Resolving]
  - Moaning [Unknown]
  - Low birth weight baby [Unknown]
